FAERS Safety Report 6172770-6 (Version None)
Quarter: 2009Q2

REPORT INFORMATION
  Report Type: 
  Country: None (occurrence: None)
  Receive Date: 20090428
  Receipt Date: 20090423
  Transmission Date: 20091009
  Serious: Yes (Death)
  Sender: FDA-Public Use
  Company Number: JHP200900096

PATIENT
  Age: 63 Year
  Sex: Male

DRUGS (4)
  1. EPINEPHRINE [Suspect]
     Indication: CARDIAC ARREST
     Dosage: 1 MG, INTRAVENOUS
     Route: 042
  2. ATROPINE [Concomitant]
  3. MORPHINE SULFATE INJ [Concomitant]
  4. NITROGLYCERIN [Concomitant]

REACTIONS (5)
  - DRUG HYPERSENSITIVITY [None]
  - INCORRECT DOSE ADMINISTERED [None]
  - SUPRAVENTRICULAR TACHYCARDIA [None]
  - VENTRICULAR FIBRILLATION [None]
  - VENTRICULAR TACHYCARDIA [None]
